FAERS Safety Report 15262565 (Version 1)
Quarter: 2018Q3

REPORT INFORMATION
  Report Type: Spontaneous
  Country: CA (occurrence: CA)
  Receive Date: 20180809
  Receipt Date: 20180809
  Transmission Date: 20181010
  Serious: Yes (Hospitalization)
  Sender: FDA-Public Use
  Company Number: CA-ALLERGAN-1839424US

PATIENT
  Age: 69 Year
  Sex: Female
  Weight: 67.12 kg

DRUGS (1)
  1. RISEDRONATE SODIUM ? BP [Suspect]
     Active Substance: RISEDRONATE SODIUM
     Indication: OSTEOPOROSIS
     Dosage: 35 MG, Q WEEK
     Route: 065

REACTIONS (2)
  - Femur fracture [Recovered/Resolved]
  - Pathological fracture [Recovered/Resolved]
